FAERS Safety Report 7521810-8 (Version None)
Quarter: 2011Q2

REPORT INFORMATION
  Report Type: 
  Country: None (occurrence: None)
  Receive Date: 20110603
  Receipt Date: 20081122
  Transmission Date: 20111010
  Serious: Yes (Other)
  Sender: FDA-Public Use
  Company Number: US-BAYER-200839517NA

PATIENT
  Age: 43 Year
  Sex: Male
  Weight: 113 kg

DRUGS (8)
  1. TRASYLOL [Suspect]
     Dosage: 50 CC/HOUR INFUSION
     Route: 041
     Dates: start: 20040414, end: 20040414
  2. ACETYLSALICYLIC ACID SRT [Concomitant]
     Dosage: 81 MG, QD
     Route: 048
     Dates: start: 20040412
  3. HEPARIN [Concomitant]
     Dosage: UNK
     Dates: start: 20040414
  4. METOPROLOL TARTRATE [Concomitant]
     Route: 048
  5. ACETAMINOPHEN [Concomitant]
     Dosage: AS NEEDED
     Route: 048
  6. ALBUMEN [Concomitant]
     Dosage: 250 ML, ONCE
     Route: 042
     Dates: start: 20040414
  7. TRASYLOL [Suspect]
     Indication: CORONARY ARTERY BYPASS
     Dosage: 200 ML, ONCE, LOADING DOSE
     Route: 042
     Dates: start: 20040414, end: 20040414
  8. KEFZOL [Concomitant]
     Dosage: 1GM
     Dates: start: 20040414

REACTIONS (11)
  - RENAL IMPAIRMENT [None]
  - RENAL INJURY [None]
  - EMOTIONAL DISTRESS [None]
  - INJURY [None]
  - ANHEDONIA [None]
  - PAIN [None]
  - RENAL FAILURE [None]
  - UNEVALUABLE EVENT [None]
  - STRESS [None]
  - ANXIETY [None]
  - FEAR [None]
